FAERS Safety Report 6092301-9 (Version None)
Quarter: 2009Q1

REPORT INFORMATION
  Report Type: 
  Country: None (occurrence: None)
  Receive Date: 20090225
  Receipt Date: 20090219
  Transmission Date: 20090719
  Serious: Yes (Other)
  Sender: FDA-Public Use
  Company Number: B0559809A

PATIENT
  Age: 13 Year
  Sex: Male

DRUGS (6)
  1. RELENZA [Suspect]
     Indication: INFLUENZA
     Dosage: 10MG TWICE PER DAY
     Route: 055
     Dates: start: 20090206, end: 20090206
  2. MEDICON [Suspect]
     Route: 048
  3. UNKNOWN MEDICATION [Suspect]
     Route: 048
  4. CEFZON [Suspect]
     Route: 048
  5. CALONAL [Suspect]
     Route: 065
  6. MOUTHWASH [Suspect]
     Route: 048

REACTIONS (3)
  - ABNORMAL BEHAVIOUR [None]
  - BODY TEMPERATURE DECREASED [None]
  - HYPERHIDROSIS [None]
